FAERS Safety Report 15859728 (Version 4)
Quarter: 2019Q2

REPORT INFORMATION
  Report Type: Spontaneous
  Country: US (occurrence: US)
  Receive Date: 20190123
  Receipt Date: 20190611
  Transmission Date: 20190711
  Serious: No
  Sender: FDA-Public Use
  Company Number: PHEH2019US003470

PATIENT
  Sex: Female
  Weight: 65.77 kg

DRUGS (1)
  1. ZOFRAN [Suspect]
     Active Substance: ONDANSETRON HYDROCHLORIDE
     Indication: MORNING SICKNESS
     Dosage: 8 MG, QD
     Route: 048
     Dates: start: 19980527, end: 19980814

REACTIONS (6)
  - Injury [Unknown]
  - Anxiety [Unknown]
  - Product use in unapproved indication [Unknown]
  - Pain [Unknown]
  - Maternal exposure during pregnancy [Unknown]
  - Emotional distress [Unknown]
